FAERS Safety Report 5250839-8 (Version None)
Quarter: 2007Q1

REPORT INFORMATION
  Report Type: 
  Country: None (occurrence: None)
  Receive Date: 20070228
  Receipt Date: 20060725
  Transmission Date: 20070707
  Serious: No
  Sender: FDA-Public Use
  Company Number: US-GLAXOSMITHKLINE-A0612322A

PATIENT
  Age: 39 Year
  Sex: Male
  Weight: 65.9 kg

DRUGS (5)
  1. LAMICTAL [Suspect]
     Route: 048
     Dates: start: 20050101
  2. RISPERDAL [Concomitant]
     Route: 048
     Dates: start: 20040101
  3. LITHIUM CARBONATE [Concomitant]
     Route: 048
  4. LORAZEPAM [Concomitant]
  5. LOTREL [Concomitant]

REACTIONS (1)
  - GINGIVAL HYPERPLASIA [None]
